FAERS Safety Report 11421022 (Version 2)
Quarter: 2015Q3

REPORT INFORMATION
  Report Type: Spontaneous
  Country: US (occurrence: US)
  Receive Date: 20150826
  Receipt Date: 20150827
  Transmission Date: 20151125
  Serious: Yes (Hospitalization, Other)
  Sender: FDA-Public Use
  Company Number: PHHY2014US139732

PATIENT
  Age: 3 Year
  Sex: Female

DRUGS (7)
  1. VINCRISTINE [Suspect]
     Active Substance: VINCRISTINE
     Indication: BONE GIANT CELL TUMOUR BENIGN
     Route: 065
  2. INTERFERON ALPHA 1-B [Suspect]
     Active Substance: INTERFERON ALFA-1B
     Indication: BONE GIANT CELL TUMOUR BENIGN
     Route: 065
  3. CYCLOPHOSPHAMIDE. [Suspect]
     Active Substance: CYCLOPHOSPHAMIDE
     Indication: BONE GIANT CELL TUMOUR BENIGN
     Route: 065
  4. PAMIDRONATE [Suspect]
     Active Substance: PAMIDRONATE DISODIUM
     Indication: BONE GIANT CELL TUMOUR BENIGN
     Dosage: UNK
     Route: 065
  5. DOXORUBICIN [Suspect]
     Active Substance: DOXORUBICIN
     Indication: BONE GIANT CELL TUMOUR BENIGN
     Route: 065
  6. BEVACIZUMAB [Suspect]
     Active Substance: BEVACIZUMAB
     Indication: BONE GIANT CELL TUMOUR BENIGN
     Route: 065
  7. ZOLEDRONATE [Suspect]
     Active Substance: ZOLEDRONIC ACID
     Indication: BONE GIANT CELL TUMOUR BENIGN
     Dosage: 4 MG/M2, QMO (6 DOSES)
     Route: 065

REACTIONS (8)
  - Product use issue [Unknown]
  - Pneumonia [Unknown]
  - Hypocalcaemia [Unknown]
  - Hypophosphataemia [Unknown]
  - Bone giant cell tumour benign [Unknown]
  - Influenza [Unknown]
  - Malignant neoplasm progression [Unknown]
  - Hyperkalaemia [Unknown]
